FAERS Safety Report 5817620-X (Version None)
Quarter: 2008Q3

REPORT INFORMATION
  Report Type: 
  Country: None (occurrence: None)
  Receive Date: 20080722
  Receipt Date: 20080710
  Transmission Date: 20090109
  Serious: Yes (Death, Hospitalization)
  Sender: FDA-Public Use
  Company Number: SE-ROCHE-570023

PATIENT
  Age: 56 Year
  Sex: Female

DRUGS (8)
  1. XELODA [Suspect]
     Route: 065
     Dates: start: 20080225, end: 20080306
  2. TAXOTERE [Suspect]
     Indication: DRUG USE FOR UNKNOWN INDICATION
     Route: 065
     Dates: start: 20080301
  3. FLUCONAZOLE [Suspect]
     Indication: DRUG USE FOR UNKNOWN INDICATION
     Route: 048
     Dates: start: 20080301
  4. CIPROFLOXACIN [Concomitant]
     Dosage: FORM: FILM COATED TABLET
  5. OMEPRAZOLE [Concomitant]
     Dosage: FORM; PARANOVA GASTRO RESISTANT CAPSULE
  6. BETAPRED [Concomitant]
  7. HYDROCORTISONE ACETATE/NEOMYCIN [Concomitant]
  8. NOLVADEX [Concomitant]

REACTIONS (1)
  - HEPATIC CIRRHOSIS [None]
